FAERS Safety Report 22116797 (Version 1)
Quarter: 2023Q1

REPORT INFORMATION
  Report Type: Report from Study
  Country: US (occurrence: US)
  Receive Date: 20230320
  Receipt Date: 20230320
  Transmission Date: 20230417
  Serious: Yes (Hospitalization)
  Sender: FDA-Public Use
  Company Number: US-TEVA-2023-US-2868299

PATIENT
  Age: 74 Year
  Sex: Female
  Weight: 64.85 kg

DRUGS (6)
  1. GABAPENTIN [Suspect]
     Active Substance: GABAPENTIN
     Indication: Product used for unknown indication
     Route: 065
  2. PARSACLISIB HYDROCHLORIDE [Suspect]
     Active Substance: PARSACLISIB HYDROCHLORIDE
     Indication: Haematological malignancy
     Route: 048
  3. PARSACLISIB HYDROCHLORIDE [Suspect]
     Active Substance: PARSACLISIB HYDROCHLORIDE
     Dosage: LAST DOSE ON  27-JAN-2022
     Route: 048
     Dates: start: 20210412
  4. ITACITINIB [Suspect]
     Active Substance: ITACITINIB
     Indication: Haematological malignancy
     Route: 048
  5. ITACITINIB [Suspect]
     Active Substance: ITACITINIB
     Dosage: 300 MILLIGRAM DAILY; LAST DOSE ON 02-FEB-2022
     Route: 048
     Dates: start: 20210412
  6. LYRICA [Suspect]
     Active Substance: PREGABALIN
     Indication: Product used for unknown indication
     Route: 065

REACTIONS (3)
  - Pulmonary embolism [Not Recovered/Not Resolved]
  - Encephalopathy [Recovered/Resolved]
  - Pyrexia [Recovered/Resolved]

NARRATIVE: CASE EVENT DATE: 20220302
